FAERS Safety Report 9914685 (Version 8)
Quarter: 2015Q1

REPORT INFORMATION
  Report Type: Report from Study
  Country: IT (occurrence: IT)
  Receive Date: 20140220
  Receipt Date: 20150113
  Transmission Date: 20150721
  Serious: Yes (Hospitalization, Other)
  Sender: FDA-Public Use
  Company Number: PHHO2014IT002569

PATIENT
  Age: 57 Year
  Sex: Male
  Weight: 60 kg

DRUGS (3)
  1. CARDIOASPIRIN [Suspect]
     Active Substance: ASPIRIN
     Indication: PROPHYLAXIS
     Dosage: 100 MG, QD
     Route: 048
     Dates: start: 20131023, end: 20140213
  2. ALLOPURINOL. [Concomitant]
     Active Substance: ALLOPURINOL
     Indication: PROPHYLAXIS
     Dosage: 300 MG, QD
     Route: 048
     Dates: end: 20140213
  3. AMN107 [Suspect]
     Active Substance: NILOTINIB
     Indication: CHRONIC MYELOID LEUKAEMIA
     Dosage: 300 MG, BID
     Route: 048
     Dates: start: 20131023, end: 20140211

REACTIONS (4)
  - Myocardial infarction [Recovered/Resolved with Sequelae]
  - Myocardial ischaemia [Recovered/Resolved with Sequelae]
  - Pain [Recovered/Resolved]
  - Electrocardiogram abnormal [Recovering/Resolving]

NARRATIVE: CASE EVENT DATE: 20140212
